FAERS Safety Report 7347497-5 (Version None)
Quarter: 2011Q1

REPORT INFORMATION
  Report Type: 
  Country: None (occurrence: None)
  Receive Date: 20110311
  Receipt Date: 20110128
  Transmission Date: 20110831
  Serious: Yes (Hospitalization, Other)
  Sender: FDA-Public Use
  Company Number: US-BAYER-2011-020920

PATIENT
  Sex: Female
  Weight: 79 kg

DRUGS (2)
  1. THYROXIN [Concomitant]
     Indication: HYPOTHYROIDISM
  2. YASMIN [Suspect]
     Indication: POLYCYSTIC OVARIES
     Dosage: 1 UNK, UNK
     Dates: start: 20020501, end: 20020801

REACTIONS (3)
  - PLEURITIC PAIN [None]
  - PULMONARY EMBOLISM [None]
  - PULMONARY INFARCTION [None]
